FAERS Safety Report 5850584-1 (Version None)
Quarter: 2008Q3

REPORT INFORMATION
  Report Type: 
  Country: None (occurrence: None)
  Receive Date: 20080820
  Receipt Date: 20080808
  Transmission Date: 20090109
  Serious: Yes (Other)
  Sender: FDA-Public Use
  Company Number: US-JNJFOC-20080504365

PATIENT
  Sex: Female
  Weight: 67.81 kg

DRUGS (7)
  1. INVEGA [Suspect]
     Indication: ANXIETY
     Route: 048
  2. INVEGA [Suspect]
     Indication: SCHIZOAFFECTIVE DISORDER
     Route: 048
  3. INVEGA [Suspect]
     Indication: BIPOLAR DISORDER
     Route: 048
  4. DEPAKOTE [Concomitant]
     Indication: BIPOLAR DISORDER
  5. LORAZEPAM [Concomitant]
     Indication: ANXIETY
  6. HORMONAL CONTRACEPTIVES FOR SYSTEMIC USE [Concomitant]
     Indication: MENSTRUAL DISORDER
  7. HORMONAL CONTRACEPTIVES FOR SYSTEMIC USE [Concomitant]
     Indication: CONTRACEPTION

REACTIONS (1)
  - BLOOD GLUCOSE INCREASED [None]
